FAERS Safety Report 15048989 (Version 1)
Quarter: 2018Q2

REPORT INFORMATION
  Report Type: Spontaneous
  Country: US (occurrence: US)
  Receive Date: 20180622
  Receipt Date: 20180622
  Transmission Date: 20180711
  Serious: No
  Sender: FDA-Public Use
  Company Number: US-BAYER-2018-116111

PATIENT
  Age: 87 Year
  Sex: Female
  Weight: 43 kg

DRUGS (2)
  1. MIRALAX [Suspect]
     Active Substance: POLYETHYLENE GLYCOL 3350
     Indication: GASTROINTESTINAL DISORDER
     Dosage: 1 DF, QD
     Route: 048
  2. GAVISCON [SODIUM ALGINATE,SODIUM BICARBONATE] [Concomitant]

REACTIONS (2)
  - Product use issue [Unknown]
  - Product prescribing issue [Unknown]
